FAERS Safety Report 9263336 (Version 1)
Quarter: 2013Q2

REPORT INFORMATION
  Report Type: Spontaneous
  Country: US (occurrence: US)
  Receive Date: 20130430
  Receipt Date: 20130430
  Transmission Date: 20140414
  Serious: No
  Sender: FDA-Public Use
  Company Number: US-ABBOTT-12P-163-0986861-00

PATIENT
  Sex: Female

DRUGS (2)
  1. CREON [Suspect]
     Indication: DYSPEPSIA
     Dates: start: 201203
  2. CREON [Suspect]
     Dosage: DECREASED TO 6000 MILLIGRAM

REACTIONS (1)
  - Diarrhoea [Recovering/Resolving]
